FAERS Safety Report 24245829 (Version 1)
Quarter: 2024Q3

REPORT INFORMATION
  Report Type: Other
  Country: FR (occurrence: FR)
  Receive Date: 20240824
  Receipt Date: 20240824
  Transmission Date: 20241017
  Serious: Yes (Death, Life-Threatening)
  Sender: ZYDUS PHARM
  Company Number: None

PATIENT

DRUGS (5)
  1. GABAPENTIN [Suspect]
     Active Substance: GABAPENTIN
     Indication: Pain
     Dosage: 300 MILLIGRAM
     Route: 048
     Dates: start: 20240618, end: 20240716
  2. AMITRIPTYLINE [Suspect]
     Active Substance: AMITRIPTYLINE
     Indication: Pain
     Dosage: 25 MILLIGRAM
     Route: 048
     Dates: start: 20240710, end: 20240716
  3. OCREVUS [Suspect]
     Active Substance: OCRELIZUMAB
     Indication: Multiple sclerosis
     Dosage: 1 DOSAGE FORM, 6 MONTHS
     Route: 042
     Dates: start: 20211029, end: 20240429
  4. PIPERACILLIN [Suspect]
     Active Substance: PIPERACILLIN
     Indication: Staphylococcal infection
     Dosage: 4 GRAM, QID
     Route: 042
     Dates: start: 20240702, end: 20240716
  5. TAZOBACTAM [Suspect]
     Active Substance: TAZOBACTAM
     Indication: Staphylococcal infection
     Dosage: 0.5 GRAM, QID
     Route: 042
     Dates: start: 20240702, end: 20240716

REACTIONS (2)
  - Hepatic cytolysis [Fatal]
  - Agranulocytosis [Not Recovered/Not Resolved]

NARRATIVE: CASE EVENT DATE: 20240716
